FAERS Safety Report 4452040-4 (Version None)
Quarter: 2004Q3

REPORT INFORMATION
  Report Type: 
  Country: None (occurrence: None)
  Receive Date: 20040915
  Receipt Date: 20040915
  Transmission Date: 20050211
  Serious: Yes (Hospitalization)
  Sender: FDA-Public Use
  Company Number: None

PATIENT
  Age: 89 Year
  Sex: Female
  Weight: 71.2 kg

DRUGS (10)
  1. FENTANYL [Suspect]
     Indication: BACK PAIN
     Dosage: 50 MCG Q3D
  2. COZAAR [Concomitant]
  3. SYNTHROID [Concomitant]
  4. LEXAPRO [Concomitant]
  5. MECLIZINE [Concomitant]
  6. AMITRIPTYLINE HCL [Concomitant]
  7. DETROL [Concomitant]
  8. ARICEPT [Concomitant]
  9. CEFEPIME [Concomitant]
  10. VICODIN [Concomitant]

REACTIONS (2)
  - CONFUSIONAL STATE [None]
  - DEPRESSED LEVEL OF CONSCIOUSNESS [None]
